FAERS Safety Report 6801559-7 (Version None)
Quarter: 2010Q2

REPORT INFORMATION
  Report Type: 
  Country: None (occurrence: None)
  Receive Date: 20100629
  Receipt Date: 20100621
  Transmission Date: 20101027
  Serious: Yes (Other)
  Sender: FDA-Public Use
  Company Number: CA-ASTRAZENECA-2010SE29266

PATIENT
  Age: 62 Year
  Sex: Female

DRUGS (5)
  1. SEROQUEL [Suspect]
     Route: 048
  2. CLONAZEPAM [Concomitant]
     Route: 048
  3. HORMONE PILL [Concomitant]
     Route: 065
  4. LYRICA [Concomitant]
     Route: 048
  5. MS CONTIN [Concomitant]
     Route: 048

REACTIONS (6)
  - BLISTER [None]
  - ERYTHEMA [None]
  - EYE SWELLING [None]
  - FACE OEDEMA [None]
  - RASH [None]
  - SKIN DISORDER [None]
